FAERS Safety Report 7571905-8 (Version None)
Quarter: 2011Q2

REPORT INFORMATION
  Report Type: 
  Country: None (occurrence: None)
  Receive Date: 20110624
  Receipt Date: 20100914
  Transmission Date: 20111010
  Serious: No
  Sender: FDA-Public Use
  Company Number: A0881099A

PATIENT
  Age: 41 Year
  Sex: Male

DRUGS (1)
  1. VERAMYST [Suspect]
     Indication: MULTIPLE ALLERGIES
     Dosage: 2SPR PER DAY
     Route: 045

REACTIONS (3)
  - VITREOUS FLOATERS [None]
  - HEADACHE [None]
  - PRODUCT QUALITY ISSUE [None]
